FAERS Safety Report 7366087-1 (Version None)
Quarter: 2011Q1

REPORT INFORMATION
  Report Type: 
  Country: None (occurrence: None)
  Receive Date: 20110322
  Receipt Date: 20110308
  Transmission Date: 20110831
  Serious: Yes (Other)
  Sender: FDA-Public Use
  Company Number: GB-AMGEN-GBRSP2011014662

PATIENT
  Age: 61 Year
  Sex: Male

DRUGS (1)
  1. ENBREL [Suspect]
     Indication: RHEUMATOID ARTHRITIS
     Dosage: 50 MG, WEEKLY

REACTIONS (6)
  - VASCULAR RUPTURE [None]
  - PAIN [None]
  - NEEDLE ISSUE [None]
  - INSOMNIA [None]
  - INJECTION SITE PAIN [None]
  - ABDOMINAL INJURY [None]
